FAERS Safety Report 5128138-4 (Version None)
Quarter: 2006Q4

REPORT INFORMATION
  Report Type: 
  Country: None (occurrence: None)
  Receive Date: 20061017
  Receipt Date: 20061006
  Transmission Date: 20070319
  Serious: Yes (Hospitalization)
  Sender: FDA-Public Use
  Company Number: US-JNJFOC-20061001695

PATIENT
  Age: 36 Year
  Sex: Male
  Weight: 64.86 kg

DRUGS (6)
  1. REMICADE [Suspect]
     Route: 042
  2. REMICADE [Suspect]
     Indication: CROHN'S DISEASE
     Dosage: SEVERAL YEARS AGO.
     Route: 042
  3. ZYPREXA [Concomitant]
  4. DEPAKOTE [Concomitant]
  5. TRAMADOL HCL [Concomitant]
  6. ENTOCORT [Concomitant]

REACTIONS (5)
  - ARTHRALGIA [None]
  - COUGH [None]
  - GAIT DISTURBANCE [None]
  - PHARYNGOLARYNGEAL PAIN [None]
  - PYREXIA [None]
